FAERS Safety Report 23433234 (Version 1)
Quarter: 2024Q1

REPORT INFORMATION
  Report Type: Spontaneous
  Country: GB (occurrence: None)
  Receive Date: 20240123
  Receipt Date: 20240123
  Transmission Date: 20240410
  Serious: Yes (Hospitalization, Other)
  Sender: FDA-Public Use
  Company Number: None

PATIENT
  Age: 27 Year
  Sex: Female
  Weight: 48 kg

DRUGS (10)
  1. CLOBETASONE [Suspect]
     Active Substance: CLOBETASONE
     Indication: Eczema
  2. BETAMETHASONE DIPROPIONATE USP, 0.05% [Suspect]
     Active Substance: BETAMETHASONE DIPROPIONATE
  3. DUPILUMAB [Suspect]
     Active Substance: DUPILUMAB
  4. Dermal lotion [Concomitant]
  5. ALBUTEROL [Concomitant]
     Active Substance: ALBUTEROL
  6. VITAMIN D [Concomitant]
     Active Substance: VITAMIN D NOS
  7. vitamin C [Concomitant]
  8. ZINC [Concomitant]
     Active Substance: PYRITHIONE ZINC\ZINC\ZINC CHLORIDE
  9. AMINO ACIDS [Concomitant]
     Active Substance: AMINO ACIDS
  10. PROBIOTICS NOS [Concomitant]
     Active Substance: PROBIOTICS NOS

REACTIONS (19)
  - Skin injury [None]
  - Swelling face [None]
  - Swelling [None]
  - Facial pain [None]
  - Erythema [None]
  - Erythema [None]
  - Hyperaesthesia [None]
  - Hot flush [None]
  - Temperature regulation disorder [None]
  - Fatigue [None]
  - Rash pruritic [None]
  - Skin infection [None]
  - Influenza like illness [None]
  - Chest pain [None]
  - Hypoaesthesia [None]
  - Eye infection [None]
  - Nausea [None]
  - Therapy cessation [None]
  - Eczema herpeticum [None]

NARRATIVE: CASE EVENT DATE: 20240102
